FAERS Safety Report 12599944 (Version 5)
Quarter: 2016Q4

REPORT INFORMATION
  Report Type: Report from Study
  Country: US (occurrence: US)
  Receive Date: 20160727
  Receipt Date: 20161021
  Transmission Date: 20170207
  Serious: Yes (Other)
  Sender: FDA-Public Use
  Company Number: US-BAYER-2016-136529

PATIENT
  Age: 58 Year
  Sex: Male

DRUGS (3)
  1. NEXAVAR [Suspect]
     Active Substance: SORAFENIB
     Indication: HEPATOCELLULAR CARCINOMA
     Dosage: 200 MG, BID
     Route: 048
     Dates: start: 20160708, end: 20160831
  2. LOVENOX [Concomitant]
     Active Substance: ENOXAPARIN SODIUM
  3. NEXAVAR [Suspect]
     Active Substance: SORAFENIB
     Indication: HEPATOCELLULAR CARCINOMA
     Dosage: 200 MG, QD
     Route: 048
     Dates: start: 20160901, end: 20161001

REACTIONS (18)
  - Blood bilirubin increased [Not Recovered/Not Resolved]
  - Pain [Not Recovered/Not Resolved]
  - Nausea [Recovered/Resolved]
  - Diarrhoea [Not Recovered/Not Resolved]
  - Hot flush [Not Recovered/Not Resolved]
  - Hepatocellular carcinoma [None]
  - Petechiae [None]
  - Flatulence [Not Recovered/Not Resolved]
  - Ammonia increased [None]
  - Peripheral swelling [None]
  - Headache [Not Recovered/Not Resolved]
  - Skin tightness [None]
  - Decreased appetite [Not Recovered/Not Resolved]
  - Fatigue [Not Recovered/Not Resolved]
  - Weight decreased [None]
  - Blood pressure increased [None]
  - Nausea [Not Recovered/Not Resolved]
  - Cellulitis [None]

NARRATIVE: CASE EVENT DATE: 2016
